FAERS Safety Report 9010193 (Version 1)
Quarter: 2013Q1

REPORT INFORMATION
  Report Type: Spontaneous
  Country: CA (occurrence: CA)
  Receive Date: 20130110
  Receipt Date: 20130110
  Transmission Date: 20140127
  Serious: Yes (Other)
  Sender: FDA-Public Use
  Company Number: CA-ELI_LILLY_AND_COMPANY-CA201301000828

PATIENT
  Age: 73 Year
  Sex: Female

DRUGS (5)
  1. FORTEO [Suspect]
     Indication: OSTEOPOROSIS
     Dosage: 20 UG, QD
     Route: 058
     Dates: start: 20110125
  2. SYNTHROID [Concomitant]
     Dosage: UNK, UNKNOWN
     Route: 065
  3. VITAMIN D [Concomitant]
     Dosage: UNK, UNKNOWN
     Route: 065
  4. ACETAMINOPHEN [Concomitant]
     Dosage: UNK, UNKNOWN
     Route: 065
  5. OMEGA 3 [Concomitant]
     Dosage: UNK, UNKNOWN
     Route: 065
     Dates: start: 20110125

REACTIONS (3)
  - Femur fracture [Not Recovered/Not Resolved]
  - Tendon injury [Unknown]
  - Pain [Unknown]
